FAERS Safety Report 12240811 (Version 1)
Quarter: 2016Q2

REPORT INFORMATION
  Report Type: Spontaneous
  Country: GB (occurrence: GB)
  Receive Date: 20160406
  Receipt Date: 20160406
  Transmission Date: 20160815
  Serious: Yes (Other)
  Sender: FDA-Public Use
  Company Number: GB-AXELLIA-000909

PATIENT
  Age: 53 Year
  Sex: Male
  Weight: 81 kg

DRUGS (5)
  1. FLUCLOXACILLIN [Concomitant]
     Active Substance: FLUCLOXACILLIN
  2. TINZAPARIN/TINZAPARIN SODIUM [Concomitant]
  3. CHLORAMPHENICOL [Concomitant]
     Active Substance: CHLORAMPHENICOL
  4. COLISTIN [Suspect]
     Active Substance: COLISTIN
     Indication: ENTEROBACTER BACTERAEMIA
     Route: 042
     Dates: start: 20160302
  5. BOOTS PARACETAMOL [Concomitant]

REACTIONS (1)
  - Acute kidney injury [Unknown]
